FAERS Safety Report 14979784 (Version 17)
Quarter: 2024Q4

REPORT INFORMATION
  Report Type: Spontaneous
  Country: US (occurrence: US)
  Receive Date: 20180606
  Receipt Date: 20241217
  Transmission Date: 20250114
  Serious: Yes (Hospitalization, Other)
  Sender: PFIZER
  Company Number: US-PFIZER INC-2018231542

PATIENT
  Age: 61 Year
  Sex: Female

DRUGS (20)
  1. XELJANZ XR [Suspect]
     Active Substance: TOFACITINIB CITRATE
     Dosage: 11 MG, 1X/DAY
     Route: 048
  2. ALBUTEROL [Concomitant]
     Active Substance: ALBUTEROL
     Dosage: UNK
  3. ASPIRIN [Concomitant]
     Active Substance: ASPIRIN
     Dosage: UNK
  4. AZELASTINE [Concomitant]
     Active Substance: AZELASTINE
     Dosage: UNK
  5. CARDIZEM [Concomitant]
     Active Substance: DILTIAZEM HYDROCHLORIDE
     Dosage: UNK
  6. DICLOFENAC SODIUM [Concomitant]
     Active Substance: DICLOFENAC SODIUM
     Dosage: UNK
  7. HYDRALAZINE [Concomitant]
     Active Substance: HYDRALAZINE HYDROCHLORIDE
  8. HYDROXYCHLOROQUINE [Concomitant]
     Active Substance: HYDROXYCHLOROQUINE
     Dosage: UNK
  9. OMEPRAZOLE [Concomitant]
     Active Substance: OMEPRAZOLE
     Dosage: UNK
  10. TRAMADOL [Concomitant]
     Active Substance: TRAMADOL
     Dosage: UNK
  11. HYALURONIC ACID [Concomitant]
     Active Substance: HYALURONIC ACID
     Dosage: UNK
  12. GABAPENTIN [Concomitant]
     Active Substance: GABAPENTIN
     Dosage: UNK
  13. MAGNESIUM OXIDE [Concomitant]
     Active Substance: MAGNESIUM OXIDE
     Dosage: UNK
  14. LEFLUNOMIDE [Concomitant]
     Active Substance: LEFLUNOMIDE
     Dosage: UNK
  15. FAMOTIDINE [Concomitant]
     Active Substance: FAMOTIDINE
     Dosage: UNK
  16. DIETARY SUPPLEMENT\HERBALS [Concomitant]
     Active Substance: DIETARY SUPPLEMENT\HERBALS
     Dosage: UNK
  17. VITAMIN D3 [Concomitant]
     Active Substance: CHOLECALCIFEROL
     Dosage: UNK
  18. LINZESS [Concomitant]
     Active Substance: LINACLOTIDE
     Dosage: 145 UG
  19. DOXYCYCLINE [Concomitant]
     Active Substance: DOXYCYCLINE
     Dosage: 100 MG
  20. VALSARTAN [Concomitant]
     Active Substance: VALSARTAN
     Dosage: 80 MG

REACTIONS (25)
  - Fatigue [Unknown]
  - Weight abnormal [Unknown]
  - COVID-19 [Unknown]
  - Hand fracture [Unknown]
  - Bronchitis [Unknown]
  - Bone disorder [Unknown]
  - Gout [Recovering/Resolving]
  - Gastrointestinal disorder [Recovering/Resolving]
  - Arthritis infective [Recovering/Resolving]
  - Hypoacusis [Unknown]
  - Speech disorder [Unknown]
  - Muscle strain [Recovering/Resolving]
  - Joint noise [Unknown]
  - Poor peripheral circulation [Unknown]
  - Gait disturbance [Unknown]
  - Back disorder [Unknown]
  - Swollen tongue [Unknown]
  - Illness [Unknown]
  - Abdominal pain upper [Unknown]
  - Malaise [Unknown]
  - Gastric infection [Recovering/Resolving]
  - Dyspepsia [Recovering/Resolving]
  - Hernia [Unknown]
  - Infected cyst [Unknown]
  - Hypertension [Unknown]
